FAERS Safety Report 4939741-6 (Version None)
Quarter: 2006Q1

REPORT INFORMATION
  Report Type: 
  Country: None (occurrence: None)
  Receive Date: 20060307
  Receipt Date: 20060223
  Transmission Date: 20060701
  Serious: Yes (Hospitalization)
  Sender: FDA-Public Use
  Company Number: 2006028670

PATIENT
  Age: 75 Year
  Sex: Female

DRUGS (6)
  1. NORVASC [Suspect]
     Indication: ILL-DEFINED DISORDER
     Dosage: 5 MG ORAL
     Route: 048
     Dates: start: 20051101
  2. ISOSORBIDE MONONITRATE [Concomitant]
  3. PRAVASTATIN [Concomitant]
  4. ASPIRIN [Concomitant]
  5. MUCOSTA (REBAMIPIDE) [Concomitant]
  6. LIPIDIL [Concomitant]

REACTIONS (1)
  - INTERSTITIAL LUNG DISEASE [None]
